FAERS Safety Report 5038568-7 (Version None)
Quarter: 2006Q2

REPORT INFORMATION
  Report Type: 
  Country: None (occurrence: None)
  Receive Date: 20060629
  Receipt Date: 20060419
  Transmission Date: 20061013
  Serious: Yes (Other)
  Sender: FDA-Public Use
  Company Number: US-BRISTOL-MYERS SQUIBB COMPANY-13351143

PATIENT
  Age: 67 Year
  Sex: Female
  Weight: 52 kg

DRUGS (4)
  1. CARBIDOPA AND LEVODOPA [Suspect]
     Indication: PARKINSON'S DISEASE
     Dates: start: 19950501
  2. REQUIP [Concomitant]
  3. EVISTA [Concomitant]
     Indication: ARTHRALGIA
  4. HYDROCODONE [Concomitant]
     Indication: ARTHRALGIA

REACTIONS (5)
  - ASTHENIA [None]
  - DEPENDENCE [None]
  - HYPOKINESIA [None]
  - MUSCLE SPASMS [None]
  - STOMACH DISCOMFORT [None]
